FAERS Safety Report 24218737 (Version 1)
Quarter: 2024Q3

REPORT INFORMATION
  Report Type: Spontaneous
  Country: GB (occurrence: None)
  Receive Date: 20240816
  Receipt Date: 20240816
  Transmission Date: 20241017
  Serious: Yes (Other)
  Sender: ASTRAZENECA
  Company Number: 2024A180599

PATIENT
  Age: 77 Year
  Sex: Male
  Weight: 97 kg

DRUGS (7)
  1. DAPAGLIFLOZIN [Suspect]
     Active Substance: DAPAGLIFLOZIN
     Dosage: ONE TO BE TAKEN DAILY
     Route: 048
     Dates: start: 20231120, end: 20240618
  2. FERROUS SULFATE [Concomitant]
     Active Substance: FERROUS SULFATE
     Dosage: ONE TO BE TAKEN EACH DAY
     Dates: start: 20240507
  3. HYDROCORTISONE\MICONAZOLE NITRATE [Concomitant]
     Active Substance: HYDROCORTISONE\MICONAZOLE NITRATE
     Dosage: APPLY TWICE A DAY FOR 7 DAYS
     Dates: start: 20240605, end: 20240718
  4. GABAPENTIN [Concomitant]
     Active Substance: GABAPENTIN
     Indication: Arthralgia
     Dosage: ONE TO BE TAKEN THREE TIMES A DAY
     Dates: start: 20240703
  5. ALTRAPLEN PROTEIN LIQUID (FLAVOUR NOT SPECIFIED) [Concomitant]
     Dosage: TAKE AS DIRECTED BY DIETICIAN
     Dates: start: 20240710
  6. ALTRAPLEN ENERGY LIQUID (FLAVOUR NOT SPECIFIED) [Concomitant]
     Dosage: AS DIRECTED BY DIETICIAN
     Dates: start: 20240710
  7. NITROFURANTOIN [Concomitant]
     Active Substance: NITROFURANTOIN
     Dosage: ONE TO BE TAKEN TWICE A DAY
     Dates: start: 20240718

REACTIONS (3)
  - Skin ulcer [Not Recovered/Not Resolved]
  - Peripheral swelling [Unknown]
  - Condition aggravated [Unknown]

NARRATIVE: CASE EVENT DATE: 20240320
